FAERS Safety Report 9097335 (Version 2)
Quarter: 2014Q2

REPORT INFORMATION
  Report Type: Spontaneous
  Country: US (occurrence: US)
  Receive Date: 20130212
  Receipt Date: 20140509
  Transmission Date: 20141212
  Serious: Yes (Hospitalization)
  Sender: FDA-Public Use
  Company Number: US-BAYER-2013-018301

PATIENT
  Age: 37 Year
  Sex: Female
  Weight: 81.63 kg

DRUGS (4)
  1. YAZ [Suspect]
     Dosage: UNK
     Dates: start: 2003, end: 2011
  2. YASMIN [Suspect]
     Dosage: UNK
     Dates: start: 2003, end: 2011
  3. OCELLA [Suspect]
     Dosage: UNK
     Dates: start: 2003, end: 2011
  4. PROTONIX [Concomitant]
     Dosage: UNK
     Dates: start: 20110217

REACTIONS (2)
  - Cerebral infarction [None]
  - Injury [None]
